FAERS Safety Report 13744972 (Version 4)
Quarter: 2017Q3

REPORT INFORMATION
  Report Type: Spontaneous
  Country: US (occurrence: US)
  Receive Date: 20170712
  Receipt Date: 20170803
  Transmission Date: 20171127
  Serious: No
  Sender: FDA-Public Use
  Company Number: US-PFIZER INC-2017295646

PATIENT
  Age: 70 Year
  Sex: Female
  Weight: 91 kg

DRUGS (3)
  1. XANAX [Suspect]
     Active Substance: ALPRAZOLAM
     Indication: ANXIETY
     Dosage: AS NEEDED (HALF OF 0.5MG TABLET, THREE TIMES/ EVENING)
  2. XANAX [Suspect]
     Active Substance: ALPRAZOLAM
     Dosage: UNK
     Dates: start: 20170705
  3. XANAX [Suspect]
     Active Substance: ALPRAZOLAM
     Dosage: 0.25 MG, AS NEEDED (TAKES HALF A TABLET AT BEDTIME)

REACTIONS (6)
  - Product physical issue [Unknown]
  - Somnolence [Unknown]
  - Insomnia [Unknown]
  - Feeling abnormal [Unknown]
  - Intentional product misuse [Unknown]
  - Asthenia [Unknown]
